FAERS Safety Report 4580816-1 (Version None)
Quarter: 2005Q1

REPORT INFORMATION
  Report Type: 
  Country: None (occurrence: None)
  Receive Date: 20050214
  Receipt Date: 20040607
  Transmission Date: 20050727
  Serious: No
  Sender: FDA-Public Use
  Company Number: US-GLAXOSMITHKLINE-A0513659A

PATIENT
  Age: 75 Year
  Sex: Female

DRUGS (6)
  1. LAMICTAL [Suspect]
     Dosage: 25MG TWICE PER DAY
     Route: 048
     Dates: start: 20040401
  2. MICRO-K 10 [Concomitant]
  3. KEPPRA [Concomitant]
  4. XALATAN [Concomitant]
  5. LOZOL [Concomitant]
  6. ATENOLOL [Concomitant]

REACTIONS (3)
  - DIFFICULTY IN WALKING [None]
  - DIZZINESS [None]
  - INSOMNIA [None]
